FAERS Safety Report 9380841 (Version 1)
Quarter: 2013Q3

REPORT INFORMATION
  Report Type: Report from Study
  Country: CA (occurrence: CA)
  Receive Date: 20130702
  Receipt Date: 20130702
  Transmission Date: 20140515
  Serious: Yes (Other)
  Sender: FDA-Public Use
  Company Number: CA-UCBSA-059881

PATIENT
  Age: 31 Year
  Sex: Female

DRUGS (4)
  1. CIMZIA [Suspect]
     Indication: RHEUMATOID ARTHRITIS
     Route: 058
     Dates: start: 20111207
  2. OMEGA FATTY ACIDS [Concomitant]
     Dosage: 2 TABLETS
     Route: 048
     Dates: start: 2011
  3. PREDNISONE [Concomitant]
     Route: 048
     Dates: start: 20120609, end: 20120613
  4. PREDNISONE [Concomitant]
     Route: 048
     Dates: start: 20120604, end: 20120608

REACTIONS (2)
  - Abortion induced [Unknown]
  - Pregnancy [Recovered/Resolved]
